FAERS Safety Report 11906676 (Version 1)
Quarter: 2016Q1

REPORT INFORMATION
  Report Type: Spontaneous
  Country: US (occurrence: None)
  Receive Date: 20160108
  Receipt Date: 20160108
  Transmission Date: 20160526
  Serious: No
  Sender: FDA-Public Use
  Company Number: None

PATIENT
  Age: 48 Year
  Sex: Male
  Weight: 92.99 kg

DRUGS (3)
  1. ASPIRIN. [Concomitant]
     Active Substance: ASPIRIN
  2. CENTRUM MULTI VITAMIN [Concomitant]
  3. CARVEDILOL 3.125 MG ZYDUS [Suspect]
     Active Substance: CARVEDILOL
     Indication: CARDIAC FAILURE
     Dosage: 1 PILL
     Route: 048
     Dates: start: 20150115, end: 20160104

REACTIONS (3)
  - Cardiac disorder [None]
  - Product substitution issue [None]
  - Palpitations [None]

NARRATIVE: CASE EVENT DATE: 20160101
